FAERS Safety Report 18710205 (Version 3)
Quarter: 2021Q1

REPORT INFORMATION
  Report Type: Other
  Country: BE (occurrence: BE)
  Receive Date: 20210107
  Receipt Date: 20210122
  Transmission Date: 20210419
  Serious: Yes (Hospitalization)
  Sender: FDA-Public Use
  Company Number: BE-ROCHE-2716872

PATIENT
  Age: 46 Year
  Sex: Male
  Weight: 80.6 kg

DRUGS (15)
  1. ATEZOLIZUMAB. [Suspect]
     Active Substance: ATEZOLIZUMAB
     Indication: SMALL CELL LUNG CANCER EXTENSIVE STAGE
     Dosage: SUBSEQUENT DOSE ON 17/AUG/2020, 19/OCT/2020, 15/JUN/2020,  27/JUL/2020, 28/SEP/2020, 6/JUL/2020, 07/
     Route: 041
     Dates: start: 20200526
  2. CO?LISINOPRIL [Concomitant]
     Active Substance: HYDROCHLOROTHIAZIDE\LISINOPRIL
     Indication: HYPERTENSION
  3. OXYNORM [Concomitant]
     Active Substance: OXYCODONE HYDROCHLORIDE
     Indication: CANCER PAIN
     Dates: start: 20200422
  4. TRADONAL ODIS [Concomitant]
     Dates: start: 20201013
  5. XGEVA [Concomitant]
     Active Substance: DENOSUMAB
     Indication: METASTASES TO BONE
     Dates: start: 20201013
  6. INUVAIR [Concomitant]
     Active Substance: BECLOMETHASONE DIPROPIONATE\FORMOTEROL FUMARATE
     Indication: DYSPNOEA
     Dates: start: 20200428
  7. LYRICA [Concomitant]
     Active Substance: PREGABALIN
     Indication: CANCER PAIN
     Dates: start: 20200422
  8. MOVICOL [Concomitant]
     Active Substance: POLYETHYLENE GLYCOL 3350\POTASSIUM CHLORIDE\SODIUM BICARBONATE\SODIUM CHLORIDE
     Indication: DIVERTICULITIS
  9. ZOLPIDEM [Concomitant]
     Active Substance: ZOLPIDEM TARTRATE
     Indication: INSOMNIA
  10. NEULASTA [Concomitant]
     Active Substance: PEGFILGRASTIM
     Dates: start: 20200508
  11. TRAMADOL. [Concomitant]
     Active Substance: TRAMADOL
     Dates: start: 20201013
  12. METFORMAX [Concomitant]
     Active Substance: METFORMIN HYDROCHLORIDE
     Indication: DIABETES MELLITUS
     Dates: start: 20200428
  13. PANTOMED (BELGIUM) [Concomitant]
     Active Substance: PANTOPRAZOLE SODIUM
  14. ATORSTATINEG [Concomitant]
     Indication: HYPERCHOLESTEROLAEMIA
  15. STEOVIT D3 [Concomitant]
     Active Substance: CALCIUM CARBONATE\CHOLECALCIFEROL

REACTIONS (3)
  - Pancreatitis acute [Recovering/Resolving]
  - Rash pruritic [Not Recovered/Not Resolved]
  - Abdominal pain [Recovering/Resolving]

NARRATIVE: CASE EVENT DATE: 20201109
